FAERS Safety Report 25998348 (Version 1)
Quarter: 2025Q4

REPORT INFORMATION
  Report Type: Report from Study
  Country: CA (occurrence: CA)
  Receive Date: 20251105
  Receipt Date: 20251105
  Transmission Date: 20260117
  Serious: Yes (Other)
  Sender: CELLTRION
  Company Number: CA-CELLTRION INC.-2025CA022523

PATIENT

DRUGS (2)
  1. USTEKINUMAB [Suspect]
     Active Substance: USTEKINUMAB
     Indication: Crohn^s disease
     Dosage: 90 MG EVERY 8 WEEKS
     Route: 058
     Dates: start: 20250317
  2. USTEKINUMAB [Suspect]
     Active Substance: USTEKINUMAB
     Dosage: 90 MG EVERY 8 WEEKS
     Route: 058
     Dates: start: 20250317

REACTIONS (4)
  - Cyst [Recovering/Resolving]
  - Aphthous ulcer [Unknown]
  - Paraesthesia [Unknown]
  - Hidradenitis [Unknown]

NARRATIVE: CASE EVENT DATE: 20250120
